FAERS Safety Report 5398069-3 (Version None)
Quarter: 2007Q3

REPORT INFORMATION
  Report Type: 
  Country: None (occurrence: None)
  Receive Date: 20070726
  Receipt Date: 20070712
  Transmission Date: 20080115
  Serious: Yes (Hospitalization)
  Sender: FDA-Public Use
  Company Number: ZA-ELI_LILLY_AND_COMPANY-ZA200706004349

PATIENT
  Age: 50 Year
  Sex: Female

DRUGS (4)
  1. CYMBALTA [Suspect]
     Indication: MAJOR DEPRESSION
     Dosage: 60 MG, DAILY (1/D)
     Route: 048
     Dates: start: 20060601, end: 20070615
  2. CYMBALTA [Suspect]
     Dosage: 30 MG, UNK
     Dates: start: 20070617
  3. CLONAZEPAM [Concomitant]
  4. TRAZODONE HCL [Concomitant]

REACTIONS (1)
  - HEPATITIS A [None]
